FAERS Safety Report 22189439 (Version 3)
Quarter: 2023Q2

REPORT INFORMATION
  Report Type: Spontaneous
  Country: PT (occurrence: PT)
  Receive Date: 20230410
  Receipt Date: 20230530
  Transmission Date: 20230721
  Serious: Yes (Life-Threatening, Hospitalization, Other)
  Sender: FDA-Public Use
  Company Number: PT-AUROBINDO-AUR-APL-2023-015443

PATIENT
  Age: 53 Year
  Sex: Female
  Weight: 37 kg

DRUGS (3)
  1. LIDOCAINE [Suspect]
     Active Substance: LIDOCAINE
     Indication: Local anaesthesia
     Dosage: 20 MILLILITER (TOTAL 200 MG)
     Route: 058
  2. LIDOCAINE [Suspect]
     Active Substance: LIDOCAINE
     Dosage: 60 MILLILITER (3 LIDOCAINE 20 ML AMPOULES, GIVING A TOTAL OF 600 MG)
     Route: 058
  3. MIDAZOLAM [Concomitant]
     Active Substance: MIDAZOLAM
     Indication: Product used for unknown indication
     Dosage: 2 MILLIGRAM
     Route: 065

REACTIONS (6)
  - Anaphylactic reaction [Recovered/Resolved]
  - Overdose [Recovered/Resolved]
  - Unresponsive to stimuli [Recovered/Resolved]
  - Local anaesthetic systemic toxicity [Recovered/Resolved]
  - Bradypnoea [Recovered/Resolved]
  - Loss of consciousness [Recovered/Resolved]
